FAERS Safety Report 24681814 (Version 2)
Quarter: 2024Q4

REPORT INFORMATION
  Report Type: Spontaneous
  Country: US (occurrence: US)
  Receive Date: 20241130
  Receipt Date: 20241130
  Transmission Date: 20250114
  Serious: Yes (Other)
  Sender: ROCHE
  Company Number: US-ROCHE-10000144183

PATIENT
  Age: 45 Year
  Sex: Female

DRUGS (1)
  1. RISDIPLAM [Suspect]
     Active Substance: RISDIPLAM
     Indication: Spinal muscular atrophy
     Route: 048

REACTIONS (10)
  - Dizziness [Unknown]
  - Disorientation [Unknown]
  - Taste disorder [Unknown]
  - Limb discomfort [Unknown]
  - Nausea [Unknown]
  - Diarrhoea [Unknown]
  - Hot flush [Unknown]
  - Cold sweat [Unknown]
  - Muscular weakness [Unknown]
  - Hypersensitivity [Unknown]
